FAERS Safety Report 4679673-4 (Version None)
Quarter: 2005Q2

REPORT INFORMATION
  Report Type: 
  Country: None (occurrence: None)
  Receive Date: 20050602
  Receipt Date: 20050523
  Transmission Date: 20051028
  Serious: Yes (Hospitalization)
  Sender: FDA-Public Use
  Company Number: US-BRISTOL-MYERS SQUIBB COMPANY-12985271

PATIENT
  Age: 66 Year
  Sex: Female
  Weight: 68 kg

DRUGS (6)
  1. KENALOG [Suspect]
  2. DIGITEK [Concomitant]
     Dosage: DOSING: 160/12.5MG ONE TABLET ONCE A DAY
  3. COMBIVENT [Concomitant]
  4. CENTRUM [Concomitant]
  5. VITAMINS [Concomitant]
  6. MINERAL TAB [Concomitant]

REACTIONS (2)
  - BLINDNESS [None]
  - ENDOPHTHALMITIS [None]
